FAERS Safety Report 24329022 (Version 3)
Quarter: 2025Q1

REPORT INFORMATION
  Report Type: Other
  Country: US (occurrence: US)
  Receive Date: 20240917
  Receipt Date: 20250207
  Transmission Date: 20250409
  Serious: Yes (Hospitalization, Other)
  Sender: TRAVERE THERAPEUTICS
  Company Number: US-TRAVERE-2024TVT00845

PATIENT
  Age: 65 Year
  Sex: Male

DRUGS (3)
  1. FILSPARI [Suspect]
     Active Substance: SPARSENTAN
     Indication: IgA nephropathy
     Route: 048
     Dates: start: 20240820, end: 20240826
  2. FILSPARI [Suspect]
     Active Substance: SPARSENTAN
     Route: 048
  3. FILSPARI [Suspect]
     Active Substance: SPARSENTAN
     Route: 048

REACTIONS (8)
  - Urinary tract infection [Unknown]
  - Pyelonephritis [Unknown]
  - Influenza [Unknown]
  - Rash macular [None]
  - Skin haemorrhage [Unknown]
  - Nausea [Unknown]
  - Fatigue [Unknown]
  - Joint swelling [None]

NARRATIVE: CASE EVENT DATE: 20241214
